FAERS Safety Report 17571462 (Version 2)
Quarter: 2020Q2

REPORT INFORMATION
  Report Type: Spontaneous
  Country: NL (occurrence: NL)
  Receive Date: 20200323
  Receipt Date: 20200423
  Transmission Date: 20200713
  Serious: Yes (Life-Threatening, Other)
  Sender: FDA-Public Use
  Company Number: NVSC2020NL062545

PATIENT
  Age: 24 Year
  Sex: Male
  Weight: 78.6 kg

DRUGS (3)
  1. KYMRIAH [Suspect]
     Active Substance: TISAGENLECLEUCEL
     Indication: B-CELL TYPE ACUTE LEUKAEMIA
     Dosage: 0.7X10^8
     Route: 042
     Dates: start: 20191227, end: 20191227
  2. VALACICLOVIR [Concomitant]
     Active Substance: VALACYCLOVIR HYDROCHLORIDE
     Indication: PRODUCT USED FOR UNKNOWN INDICATION
     Dosage: 500 MG (2 DD)
     Route: 065
  3. COTRIMOXAZOLE [Concomitant]
     Active Substance: SULFAMETHOXAZOLE\TRIMETHOPRIM
     Indication: PRODUCT USED FOR UNKNOWN INDICATION
     Dosage: 480 MG (1 DD)
     Route: 065

REACTIONS (12)
  - Thrombocytopenia [Not Recovered/Not Resolved]
  - Blood iron increased [Unknown]
  - Bone marrow failure [Not Recovered/Not Resolved]
  - Blood creatinine decreased [Unknown]
  - Leukopenia [Not Recovered/Not Resolved]
  - Platelet count decreased [Unknown]
  - Lymphopenia [Not Recovered/Not Resolved]
  - Anaemia [Not Recovered/Not Resolved]
  - Pancytopenia [Not Recovered/Not Resolved]
  - Neutropenia [Not Recovered/Not Resolved]
  - Hepatic enzyme increased [Recovering/Resolving]
  - Mouth ulceration [Unknown]

NARRATIVE: CASE EVENT DATE: 20200115
